FAERS Safety Report 5279732-1 (Version None)
Quarter: 2007Q1

REPORT INFORMATION
  Report Type: 
  Country: None (occurrence: None)
  Receive Date: 20061213
  Receipt Date: 20060123
  Transmission Date: 20070707
  Serious: No
  Sender: FDA-Public Use
  Company Number: 2006UW01185

PATIENT
  Sex: Female

DRUGS (1)
  1. SEROQUEL [Suspect]
     Indication: BIPOLAR DISORDER
     Dosage: 800 MG PO
     Route: 048
     Dates: start: 20050301

REACTIONS (3)
  - BLOOD GLUCOSE INCREASED [None]
  - CONTUSION [None]
  - HEART RATE INCREASED [None]
